FAERS Safety Report 20903713 (Version 2)
Quarter: 2022Q2

REPORT INFORMATION
  Report Type: Spontaneous
  Country: US (occurrence: US)
  Receive Date: 20220602
  Receipt Date: 20220617
  Transmission Date: 20220721
  Serious: No
  Sender: FDA-Public Use
  Company Number: US-BEH-2022145996

PATIENT
  Sex: Female

DRUGS (1)
  1. HIZENTRA [Suspect]
     Active Substance: HUMAN IMMUNOGLOBULIN G
     Dosage: UNK
     Route: 065

REACTIONS (7)
  - Infusion site extravasation [Unknown]
  - Liquid product physical issue [Unknown]
  - Injection site urticaria [Unknown]
  - Injection site swelling [Unknown]
  - No adverse event [Unknown]
  - Device issue [Unknown]
  - Device leakage [Unknown]
